FAERS Safety Report 21230115 (Version 2)
Quarter: 2022Q3

REPORT INFORMATION
  Report Type: Report from Study
  Country: CN (occurrence: CN)
  Receive Date: 20220818
  Receipt Date: 20220824
  Transmission Date: 20221027
  Serious: Yes (Hospitalization)
  Sender: FDA-Public Use
  Company Number: CN-JNJFOC-20220822702

PATIENT
  Age: 64 Year
  Sex: Male
  Weight: 52 kg

DRUGS (11)
  1. AMIVANTAMAB [Suspect]
     Active Substance: AMIVANTAMAB
     Indication: Non-small cell lung cancer metastatic
     Route: 042
     Dates: start: 20211105, end: 20211203
  2. WEISEN-U [Concomitant]
     Indication: Chronic gastritis
     Route: 048
     Dates: start: 20211026
  3. LOTIO CALAMINAE [Concomitant]
     Indication: Dermatitis allergic
     Route: 061
     Dates: start: 20211112
  4. LOTIO CALAMINAE [Concomitant]
     Indication: Folliculitis
  5. FUSIDIC ACID [Concomitant]
     Active Substance: FUSIDIC ACID
     Indication: Dermatitis allergic
     Route: 061
     Dates: start: 20211112
  6. FUSIDIC ACID [Concomitant]
     Active Substance: FUSIDIC ACID
     Indication: Folliculitis
  7. EBASTINE [Concomitant]
     Active Substance: EBASTINE
     Indication: Dermatitis allergic
     Route: 048
     Dates: start: 20211112
  8. EBASTINE [Concomitant]
     Active Substance: EBASTINE
     Indication: Folliculitis
  9. MINOCYCLINE HYDROCHLORIDE [Concomitant]
     Active Substance: MINOCYCLINE HYDROCHLORIDE
     Indication: Dermatitis allergic
     Route: 048
     Dates: start: 20211112
  10. MINOCYCLINE HYDROCHLORIDE [Concomitant]
     Active Substance: MINOCYCLINE HYDROCHLORIDE
     Indication: Folliculitis
  11. ACETYLSPIRAMYCIN [SPIRAMYCIN] [Concomitant]
     Indication: Pruritus
     Route: 048
     Dates: start: 20211129

REACTIONS (1)
  - Superior sagittal sinus thrombosis [Recovering/Resolving]

NARRATIVE: CASE EVENT DATE: 20220809
